FAERS Safety Report 10075444 (Version 1)
Quarter: 2014Q1

REPORT INFORMATION
  Report Type: Spontaneous
  Country: US (occurrence: None)
  Receive Date: 20140318
  Receipt Date: 20140318
  Transmission Date: 20141002
  Serious: Yes (Other)
  Sender: FDA-Public Use
  Company Number: 2013SA065767

PATIENT
  Age: 57 Year
  Sex: Female

DRUGS (1)
  1. AUBAGIO [Suspect]
     Indication: MULTIPLE SCLEROSIS
     Dosage: 7 MILLIGRAM(S); DAILY; ORAL
     Route: 048
     Dates: start: 20130307

REACTIONS (5)
  - Burning sensation [None]
  - Paraesthesia [None]
  - Amnesia [None]
  - Deafness [None]
  - Hypoaesthesia [None]
